FAERS Safety Report 8895700 (Version 6)
Quarter: 2013Q1

REPORT INFORMATION
  Report Type: Spontaneous
  Country: US (occurrence: US)
  Receive Date: 20121107
  Receipt Date: 20130307
  Transmission Date: 20140127
  Serious: Yes (Hospitalization, Other)
  Sender: FDA-Public Use
  Company Number: US-009507513-1202USA00858

PATIENT
  Sex: Female
  Weight: 87.98 kg

DRUGS (13)
  1. FOSAMAX [Suspect]
     Indication: OSTEOPENIA
     Dosage: 10 MG, QW
     Route: 048
     Dates: start: 1998, end: 20050113
  2. FOSAMAX [Suspect]
     Indication: PITUITARY-DEPENDENT CUSHING^S SYNDROME
     Dosage: 70 MG, QW
     Route: 048
     Dates: start: 20050311, end: 20051216
  3. FOSAMAX [Suspect]
     Indication: OSTEOPOROSIS
  4. FOSAMAX PLUS D [Suspect]
     Indication: OSTEOPENIA
     Dosage: 70 MG/2,800, QW
     Route: 048
     Dates: start: 20070307, end: 20081118
  5. FOSAMAX PLUS D [Suspect]
     Indication: PITUITARY-DEPENDENT CUSHING^S SYNDROME
  6. ALENDRONATE SODIUM [Suspect]
     Indication: OSTEOPENIA
     Dosage: 70 MG, QW
     Route: 048
     Dates: start: 20081216, end: 20091018
  7. ALENDRONATE SODIUM [Suspect]
     Indication: PITUITARY-DEPENDENT CUSHING^S SYNDROME
  8. ASCORBIC ACID [Concomitant]
     Dosage: 1000 MG, QD
     Dates: start: 1990
  9. VITAMIN D (UNSPECIFIED) [Concomitant]
     Dosage: 1000 MG, QD
     Dates: start: 1990
  10. VITAMIN E [Concomitant]
     Dosage: 400 IU, QD
     Dates: start: 1990
  11. VITAMINS (UNSPECIFIED) [Concomitant]
     Dosage: 500MG + 1000IU, QD
     Dates: start: 1990
  12. CITRACAL + D [Concomitant]
     Dosage: 650MG + 500 IU, QD
     Dates: start: 1990
  13. NEXIUM [Concomitant]
     Dosage: 40 MG, QD
     Dates: start: 1990

REACTIONS (31)
  - Femoral neck fracture [Unknown]
  - Internal fixation of fracture [Unknown]
  - Pancreatitis [Unknown]
  - Surgery [Unknown]
  - Intramedullary rod insertion [Unknown]
  - Femur fracture [Unknown]
  - Femur fracture [Unknown]
  - Foot fracture [Not Recovered/Not Resolved]
  - Calcium deficiency [Unknown]
  - Endodontic procedure [Unknown]
  - Adverse event [Unknown]
  - Blood cholesterol increased [Unknown]
  - Inappropriate schedule of drug administration [Unknown]
  - Pituitary-dependent Cushing^s syndrome [Unknown]
  - Foot fracture [Unknown]
  - Treatment failure [Unknown]
  - Pleural effusion [Unknown]
  - Hyperlipidaemia [Unknown]
  - Sleep apnoea syndrome [Unknown]
  - Spinal osteoarthritis [Unknown]
  - Osteoarthritis [Unknown]
  - Chondrocalcinosis pyrophosphate [Unknown]
  - Rheumatoid arthritis [Unknown]
  - Fatigue [Unknown]
  - Asthenia [Unknown]
  - Injury [Unknown]
  - Dyspnoea [Unknown]
  - Off label use [Unknown]
  - Drug ineffective [Unknown]
  - Myalgia [Unknown]
  - Osteoarthritis [Unknown]
